FAERS Safety Report 13795072 (Version 15)
Quarter: 2025Q4

REPORT INFORMATION
  Report Type: Report from Study
  Country: EU (occurrence: EU)
  Receive Date: 20170726
  Receipt Date: 20251013
  Transmission Date: 20260117
  Serious: Yes (Other)
  Sender: BOEHRINGER INGELHEIM
  Company Number: EU-BOEHRINGERINGELHEIM-2016-BI-082892

PATIENT
  Age: 79 Year
  Sex: Male
  Weight: 77 kg

DRUGS (2)
  1. NINTEDANIB [Suspect]
     Active Substance: NINTEDANIB
     Indication: Lung adenocarcinoma
     Route: 048
     Dates: start: 20160404, end: 20160606
  2. DOCETAXEL [Suspect]
     Active Substance: DOCETAXEL
     Indication: Lung adenocarcinoma
     Dosage: DAILY DOSE: 60MG/M2 PER BODY SURFACE AREA (BSA); FORMULATION : LIQUID
     Route: 042
     Dates: start: 20160404

REACTIONS (5)
  - Febrile neutropenia [Recovered/Resolved]
  - Muscular weakness [Recovered/Resolved]
  - Chills [Recovered/Resolved]
  - Alopecia [Unknown]
  - Fatigue [Recovered/Resolved]

NARRATIVE: CASE EVENT DATE: 20160504
